FAERS Safety Report 4338077-4 (Version None)
Quarter: 2004Q1

REPORT INFORMATION
  Report Type: 
  Country: None (occurrence: None)
  Receive Date: 20040329
  Receipt Date: 20040212
  Transmission Date: 20041129
  Serious: No
  Sender: FDA-Public Use
  Company Number: USA040157889

PATIENT
  Age: 7 Year
  Sex: Male
  Weight: 33 kg

DRUGS (1)
  1. STRATTERA [Suspect]
     Indication: ATTENTION DEFICIT/HYPERACTIVITY DISORDER
     Dosage: 60 MG/DAY
     Dates: start: 20040108

REACTIONS (9)
  - ANGER [None]
  - ANXIETY [None]
  - CRYING [None]
  - DECREASED APPETITE [None]
  - DRUG EFFECT DECREASED [None]
  - EXCITABILITY [None]
  - IMPULSIVE BEHAVIOUR [None]
  - NAUSEA [None]
  - PRESCRIBED OVERDOSE [None]
